FAERS Safety Report 6441685-8 (Version None)
Quarter: 2009Q4

REPORT INFORMATION
  Report Type: 
  Country: None (occurrence: None)
  Receive Date: 20091116
  Receipt Date: 20090819
  Transmission Date: 20100525
  Serious: No
  Sender: FDA-Public Use
  Company Number: US-SANOFI-AVENTIS-200817280US

PATIENT
  Sex: Female

DRUGS (2)
  1. LEFLUNOMIDE [Suspect]
     Dosage: DOSE AS USED: UNK
  2. ASCORBIC ACID AND BIOTIN AND TOCOPHEROL AND NICOTINIC ACID AND RETINOL [Concomitant]
     Dosage: DOSE AS USED: UNK

REACTIONS (1)
  - DRUG EXPOSURE DURING PREGNANCY [None]
